FAERS Safety Report 4315538-5 (Version None)
Quarter: 2004Q1

REPORT INFORMATION
  Report Type: 
  Country: None (occurrence: None)
  Receive Date: 20040311
  Receipt Date: 20031106
  Transmission Date: 20041129
  Serious: Yes (Other)
  Sender: FDA-Public Use
  Company Number: US-ROCHE-351227

PATIENT
  Age: 55 Year
  Sex: Female
  Weight: 52.6 kg

DRUGS (1)
  1. LARIAM [Suspect]
     Indication: MALARIA PROPHYLAXIS
     Route: 048
     Dates: start: 20031104, end: 20031104

REACTIONS (3)
  - DYSGEUSIA [None]
  - FACIAL PALSY [None]
  - VISION BLURRED [None]
